FAERS Safety Report 23089141 (Version 12)
Quarter: 2024Q1

REPORT INFORMATION
  Report Type: Spontaneous
  Country: US (occurrence: US)
  Receive Date: 20231020
  Receipt Date: 20240320
  Transmission Date: 20240410
  Serious: No
  Sender: FDA-Public Use
  Company Number: US-PFIZER INC-202300314157

PATIENT
  Age: 13 Year
  Sex: Male
  Weight: 36.281 kg

DRUGS (1)
  1. GENOTROPIN [Suspect]
     Active Substance: SOMATROPIN
     Indication: Growth disorder
     Dosage: 1.6 MG, DAILY
     Dates: start: 20230904, end: 20230924

REACTIONS (6)
  - Wrong technique in device usage process [Unknown]
  - Drug dose omission by device [Unknown]
  - Device use error [Unknown]
  - Liquid product physical issue [Unknown]
  - Device malfunction [Unknown]
  - Device issue [Unknown]

NARRATIVE: CASE EVENT DATE: 20230901
